FAERS Safety Report 5103578-8 (Version None)
Quarter: 2006Q3

REPORT INFORMATION
  Report Type: 
  Country: None (occurrence: None)
  Receive Date: 20060908
  Receipt Date: 20060822
  Transmission Date: 20061208
  Serious: Yes (Hospitalization)
  Sender: FDA-Public Use
  Company Number: US-2006-024336

PATIENT
  Age: 61 Year
  Sex: Female

DRUGS (1)
  1. BETASERON [Suspect]
     Indication: MULTIPLE SCLEROSIS
     Dosage: 8 MIU EVERY 2D SUBCUTANEOUS
     Route: 058
     Dates: start: 19960222

REACTIONS (4)
  - MUSCLE SPASMS [None]
  - POLYMYALGIA RHEUMATICA [None]
  - SYNOVIAL CYST [None]
  - THROMBOSIS [None]
